FAERS Safety Report 9525302 (Version 1)
Quarter: 2013Q3

REPORT INFORMATION
  Report Type: Spontaneous
  Country: US (occurrence: None)
  Receive Date: 20130912
  Receipt Date: 20130912
  Transmission Date: 20140515
  Serious: Yes (Other)
  Sender: FDA-Public Use
  Company Number: 2013-US-000101

PATIENT
  Age: 33 Year
  Sex: Female
  Weight: 53.1 kg

DRUGS (9)
  1. XYREM [Suspect]
     Indication: NARCOLEPSY
     Route: 048
     Dates: start: 20130709, end: 2013
  2. XYREM [Suspect]
     Indication: CATAPLEXY
     Route: 048
     Dates: start: 20130709, end: 2013
  3. ACETAMINOPHEN [Concomitant]
  4. AMPHETAMINE SALTS [Concomitant]
  5. CITALOPRAM [Concomitant]
  6. CLONAZEPAM [Concomitant]
  7. DICYCLOMINE [Concomitant]
  8. DOCUSATE SODIUM [Concomitant]
  9. MODAFINIL [Concomitant]

REACTIONS (4)
  - Ovarian cyst ruptured [None]
  - Abdominal operation [None]
  - Post procedural complication [None]
  - Weight decreased [None]
